FAERS Safety Report 11739616 (Version 3)
Quarter: 2015Q4

REPORT INFORMATION
  Report Type: Report from Study
  Country: BR (occurrence: BR)
  Receive Date: 20151113
  Receipt Date: 20151216
  Transmission Date: 20160304
  Serious: Yes (Other)
  Sender: FDA-Public Use
  Company Number: PHHY2015BR147949

PATIENT
  Sex: Female
  Weight: 60 kg

DRUGS (2)
  1. EXJADE [Suspect]
     Active Substance: DEFERASIROX
     Dosage: 15 MG/KG, QD (2 TABLETS OF 500 MG DAILY)
     Route: 048
  2. EXJADE [Suspect]
     Active Substance: DEFERASIROX
     Indication: SICKLE CELL ANAEMIA
     Dosage: 1 DF, UNK
     Route: 065

REACTIONS (7)
  - Speech disorder [Unknown]
  - Memory impairment [Unknown]
  - Serum ferritin increased [Unknown]
  - Urinary tract infection [Recovered/Resolved]
  - Syncope [Unknown]
  - Headache [Unknown]
  - Maternal exposure during pregnancy [Unknown]
